FAERS Safety Report 23828320 (Version 1)
Quarter: 2024Q2

REPORT INFORMATION
  Report Type: Spontaneous
  Country: GB (occurrence: GB)
  Receive Date: 20240508
  Receipt Date: 20240508
  Transmission Date: 20240716
  Serious: Yes (Other)
  Sender: FDA-Public Use
  Company Number: None

PATIENT
  Age: 13 Year
  Sex: Male
  Weight: 39 kg

DRUGS (3)
  1. IBUPROFEN [Suspect]
     Active Substance: IBUPROFEN
     Indication: Product used for unknown indication
     Dosage: UNK, (GEL)
     Route: 065
     Dates: start: 20240412
  2. AMOXICILLIN [Concomitant]
     Active Substance: AMOXICILLIN
     Indication: Product used for unknown indication
     Dosage: UNK, (FOR AGE 5 YEARS TO 17 YEARS) TAKE A 10ML DOSE 3 TIMES A DAY)
     Route: 065
     Dates: start: 20240321, end: 20240328
  3. SOPROBEC [Concomitant]
     Indication: Product used for unknown indication
     Dosage: 4 DOSAGE FORM, QD, (INHALE 2 DOSES TWICE DAILY)
     Dates: start: 20240123

REACTIONS (1)
  - Application site rash [Recovered/Resolved]
